FAERS Safety Report 25445609 (Version 2)
Quarter: 2025Q2

REPORT INFORMATION
  Report Type: Report from Study
  Country: DE (occurrence: DE)
  Receive Date: 20250617
  Receipt Date: 20250623
  Transmission Date: 20250717
  Serious: Yes (Hospitalization, Other)
  Sender: TAKEDA
  Company Number: DE-TAKEDA-2025TUS054621

PATIENT
  Age: 9 Year
  Sex: Female

DRUGS (1)
  1. ADAMTS13, RECOMBINANT-KRHN [Suspect]
     Active Substance: ADAMTS13, RECOMBINANT-KRHN
     Indication: Congenital thrombotic thrombocytopenic purpura
     Dosage: 1000 INTERNATIONAL UNIT, Q2WEEKS
     Dates: start: 20250515

REACTIONS (4)
  - Pneumonia [Not Recovered/Not Resolved]
  - Drug hypersensitivity [Unknown]
  - Abdominal pain upper [Unknown]
  - Liver function test abnormal [Unknown]

NARRATIVE: CASE EVENT DATE: 20250608
